FAERS Safety Report 22235790 (Version 3)
Quarter: 2023Q2

REPORT INFORMATION
  Report Type: Report from Study
  Country: CA (occurrence: CA)
  Receive Date: 20230420
  Receipt Date: 20230515
  Transmission Date: 20230721
  Serious: Yes (Hospitalization)
  Sender: FDA-Public Use
  Company Number: CA-VERTEX PHARMACEUTICALS-2023-005294

PATIENT
  Age: 48 Year
  Sex: Female
  Weight: 55 kg

DRUGS (10)
  1. TRIKAFTA [Suspect]
     Active Substance: ELEXACAFTOR\IVACAFTOR\TEZACAFTOR
     Indication: Cystic fibrosis
     Dosage: TWO TABLETS IN THE MORNING AND ONE TABLET IN THE EVENING
     Route: 048
     Dates: start: 20220129
  2. SODIUM CHLORIDE [Concomitant]
     Active Substance: SODIUM CHLORIDE
     Dosage: BID
     Route: 055
  3. POLYETHYLENE GLYCOL 3350 [Concomitant]
     Active Substance: POLYETHYLENE GLYCOL 3350
     Dosage: 3/4 LID FULL OF POWDER, QDAILY
     Route: 048
     Dates: end: 2023
  4. CREON [Concomitant]
     Active Substance: PANCRELIPASE AMYLASE\PANCRELIPASE LIPASE\PANCRELIPASE PROTEASE
     Dosage: 3 CAPSULES DAILY WITH MEALS, 2 WITH SNACKS
     Route: 048
  5. VITAMIN D [Concomitant]
     Active Substance: VITAMIN D NOS
     Dosage: LIQUID, QDAILY
     Route: 048
  6. CALCIUM CITRATE [Concomitant]
     Active Substance: CALCIUM CITRATE
     Dosage: UNK UNK, QD
     Route: 048
  7. VALACYCLOVIR [Concomitant]
     Active Substance: VALACYCLOVIR HYDROCHLORIDE
     Dosage: DAILY
     Route: 048
  8. I-DROP PM [Concomitant]
     Dosage: HYDRATING DROPS; 4-8 TIMES DAILY
  9. TEA TREE OIL [Concomitant]
     Active Substance: TEA TREE OIL
     Dosage: WIPES, TWICE DAILY
  10. TOBRADEX [Concomitant]
     Active Substance: DEXAMETHASONE\TOBRAMYCIN
     Dosage: ONCE DAILY AT NIGHT

REACTIONS (2)
  - Psychotic disorder [Recovered/Resolved]
  - Stress [Recovered/Resolved]

NARRATIVE: CASE EVENT DATE: 20221001
